FAERS Safety Report 8952521 (Version 1)
Quarter: 2012Q4

REPORT INFORMATION
  Report Type: Report from Study
  Country: CA (occurrence: CA)
  Receive Date: 20121205
  Receipt Date: 20121205
  Transmission Date: 20130627
  Serious: No
  Sender: FDA-Public Use
  Company Number: CA-JNJFOC-20121200768

PATIENT
  Age: 44 Year
  Sex: Male
  Weight: 100 kg

DRUGS (4)
  1. REMICADE [Suspect]
     Indication: COLITIS ULCERATIVE
     Route: 042
     Dates: start: 20091106
  2. BIAXIN [Suspect]
     Indication: PHARYNGITIS
     Route: 065
  3. OMEPRAZOLE [Concomitant]
     Route: 065
  4. CITALOPRAM [Concomitant]
     Route: 065

REACTIONS (2)
  - Fungal infection [Unknown]
  - Pharyngitis [Recovering/Resolving]
